FAERS Safety Report 4425700-9 (Version None)
Quarter: 2004Q3

REPORT INFORMATION
  Report Type: 
  Country: None (occurrence: None)
  Receive Date: 20040810
  Receipt Date: 20040727
  Transmission Date: 20050211
  Serious: Yes (Death, Hospitalization)
  Sender: FDA-Public Use
  Company Number: 2004-BP-06094BP

PATIENT
  Age: 82 Year
  Sex: Female
  Weight: 49.4 kg

DRUGS (1)
  1. MOBIC [Suspect]
     Indication: OSTEOARTHRITIS
     Dosage: (7.5 MG), PO
     Route: 048
     Dates: start: 20040628

REACTIONS (7)
  - BLOOD PRESSURE DECREASED [None]
  - FALL [None]
  - GASTRIC ULCER HAEMORRHAGE [None]
  - GASTROINTESTINAL DISORDER [None]
  - HEAD INJURY [None]
  - LACERATION [None]
  - SYNCOPE [None]
